FAERS Safety Report 7583412-7 (Version None)
Quarter: 2011Q2

REPORT INFORMATION
  Report Type: 
  Country: None (occurrence: None)
  Receive Date: 20110630
  Receipt Date: 20110621
  Transmission Date: 20111010
  Serious: Yes (Hospitalization, Other)
  Sender: FDA-Public Use
  Company Number: US-BAYER-201031055NA

PATIENT
  Age: 26 Year
  Sex: Female
  Weight: 110 kg

DRUGS (3)
  1. METHYLPREDNISOLONE [Concomitant]
     Dosage: 40 MG, UNK
     Dates: start: 20100224
  2. ADVIL LIQUI-GELS [Concomitant]
  3. YAZ [Suspect]
     Indication: PREMENSTRUAL SYNDROME
     Dosage: UNK
     Route: 048
     Dates: start: 20080101, end: 20100201

REACTIONS (3)
  - PULMONARY EMBOLISM [None]
  - DEPRESSION [None]
  - DEEP VEIN THROMBOSIS [None]
